FAERS Safety Report 8152100 (Version 2)
Quarter: 2013Q1

REPORT INFORMATION
  Report Type: Spontaneous
  Country: US (occurrence: US)
  Receive Date: 20110922
  Receipt Date: 20130215
  Transmission Date: 20140127
  Serious: Yes (Other)
  Sender: FDA-Public Use
  Company Number: US-ASTRAZENECA-2011SE12548

PATIENT
  Sex: 0

DRUGS (16)
  1. SEROQUEL [Suspect]
     Dosage: 50 TO 100 MG
     Route: 048
     Dates: start: 20080722
  2. VENLAFAXINE [Concomitant]
     Dates: start: 20080722
  3. BUSPIRONE HCL [Concomitant]
     Dates: start: 20080722
  4. NEXIUM [Concomitant]
     Dates: start: 20080912
  5. PROPRANOLOL [Concomitant]
     Dates: start: 20080912
  6. MUCINEX [Concomitant]
     Dates: start: 20080912
  7. TOPIRAMATE [Concomitant]
     Dosage: 25 TO 100 MG
     Dates: start: 20100201
  8. HYDROCODONE/APAP [Concomitant]
     Dosage: 10/650
     Dates: start: 20100615
  9. LEVAQUIN [Concomitant]
     Dates: start: 20100628
  10. MECLIZINE [Concomitant]
     Dates: start: 20100628
  11. CYMBALTA [Concomitant]
     Dates: start: 20100702
  12. LUNESTA [Concomitant]
     Dates: start: 20100702
  13. SERTRALINE [Concomitant]
     Dates: start: 20100702
  14. SALSALATE [Concomitant]
     Dates: start: 20100708
  15. AMITRIPTYLINE HCL [Concomitant]
     Dates: start: 20100827
  16. OMEPRAZOLE [Concomitant]
     Dates: start: 20100827

REACTIONS (3)
  - Pancreatitis [Unknown]
  - Diabetic coma [Unknown]
  - Type 2 diabetes mellitus [Unknown]
